FAERS Safety Report 21023670 (Version 1)
Quarter: 2022Q2

REPORT INFORMATION
  Report Type: Spontaneous
  Country: US (occurrence: None)
  Receive Date: 20220629
  Receipt Date: 20220629
  Transmission Date: 20220721
  Serious: No
  Sender: FDA-Public Use
  Company Number: None

PATIENT
  Sex: Female

DRUGS (1)
  1. DEFEROXAMINE MESYLATE [Suspect]
     Active Substance: DEFEROXAMINE MESYLATE
     Indication: Thalassaemia sickle cell
     Dosage: 2000MG 5 TIMES PER WEEK SUBCUTANEOUS?
     Route: 058
     Dates: start: 20201119

REACTIONS (2)
  - Infusion site pain [None]
  - Sickle cell anaemia with crisis [None]
